FAERS Safety Report 10675651 (Version 1)
Quarter: 2014Q4

REPORT INFORMATION
  Report Type: Spontaneous
  Country: IT (occurrence: IT)
  Receive Date: 20141224
  Receipt Date: 20141224
  Transmission Date: 20150529
  Serious: Yes (Other)
  Sender: FDA-Public Use
  Company Number: IT-ACTAVIS-2014-27426

PATIENT
  Age: 84 Year
  Sex: Female

DRUGS (1)
  1. QUETIAPINE (UNKNOWN) [Suspect]
     Active Substance: QUETIAPINE
     Indication: NERVOUS SYSTEM DISORDER
     Dosage: 100 MG, TOTAL
     Route: 048
     Dates: start: 20140901, end: 20140901

REACTIONS (3)
  - Confusional state [Recovering/Resolving]
  - Sopor [Recovering/Resolving]
  - Repetitive speech [Recovering/Resolving]

NARRATIVE: CASE EVENT DATE: 20140901
